FAERS Safety Report 24126260 (Version 3)
Quarter: 2024Q3

REPORT INFORMATION
  Report Type: Spontaneous
  Country: CN (occurrence: CN)
  Receive Date: 20240723
  Receipt Date: 20240807
  Transmission Date: 20241016
  Serious: Yes (Other)
  Sender: AMGEN
  Company Number: CN-AMGEN-CHNSP2024144418

PATIENT

DRUGS (1)
  1. BLINATUMOMAB [Suspect]
     Active Substance: BLINATUMOMAB
     Indication: B-cell type acute leukaemia
     Dosage: OVER 24 HOURS, CONTINUING, EACH CYCLE WAS 28 DAYS
     Route: 042

REACTIONS (2)
  - Acute lymphocytic leukaemia recurrent [Unknown]
  - Gene mutation [Unknown]
